FAERS Safety Report 25564665 (Version 1)
Quarter: 2025Q3

REPORT INFORMATION
  Report Type: Spontaneous
  Country: US (occurrence: US)
  Receive Date: 20250716
  Receipt Date: 20250716
  Transmission Date: 20251020
  Serious: Yes (Hospitalization, Other)
  Sender: NOVO NORDISK
  Company Number: US-NOVOPROD-1293325

PATIENT
  Age: 54 Year
  Sex: Female
  Weight: 105 kg

DRUGS (12)
  1. OZEMPIC [Suspect]
     Active Substance: SEMAGLUTIDE
     Indication: Weight control
  2. OZEMPIC [Suspect]
     Active Substance: SEMAGLUTIDE
     Indication: Type 2 diabetes mellitus
     Dosage: UNK
     Route: 058
     Dates: start: 20220710, end: 20230920
  3. OZEMPIC [Suspect]
     Active Substance: SEMAGLUTIDE
     Indication: Cardiovascular event prophylaxis
  4. LANTUS [Concomitant]
     Active Substance: INSULIN GLARGINE
     Indication: Type 2 diabetes mellitus
     Dates: start: 20220324
  5. TOUJEO [Concomitant]
     Active Substance: INSULIN GLARGINE
     Indication: Type 2 diabetes mellitus
     Dates: start: 20221202
  6. HUMALOG [Concomitant]
     Active Substance: INSULIN LISPRO
     Indication: Type 2 diabetes mellitus
     Dates: start: 20220311
  7. GLIPIZIDE [Concomitant]
     Active Substance: GLIPIZIDE
     Indication: Type 2 diabetes mellitus
     Dates: start: 20230202
  8. METFORMIN [Concomitant]
     Active Substance: METFORMIN HYDROCHLORIDE
     Indication: Type 2 diabetes mellitus
     Dates: start: 20230101
  9. ATORVASTATIN [Concomitant]
     Active Substance: ATORVASTATIN
     Indication: Blood cholesterol increased
     Dates: start: 20220308
  10. PRAVASTATIN [Concomitant]
     Active Substance: PRAVASTATIN
     Indication: Blood cholesterol increased
     Dates: start: 20220506
  11. ASPIRIN [Concomitant]
     Active Substance: ASPIRIN
     Indication: Pain
     Dates: start: 20181026
  12. VITAMIN D NOS [Concomitant]
     Active Substance: CHOLECALCIFEROL\ERGOCALCIFEROL
     Indication: Vitamin D deficiency
     Dates: start: 20200416

REACTIONS (1)
  - Impaired gastric emptying [Not Recovered/Not Resolved]

NARRATIVE: CASE EVENT DATE: 20230901
